FAERS Safety Report 7666965-X (Version None)
Quarter: 2011Q3

REPORT INFORMATION
  Report Type: 
  Country: None (occurrence: None)
  Receive Date: 20110806
  Receipt Date: 20110719
  Transmission Date: 20111222
  Serious: No
  Sender: FDA-Public Use
  Company Number: US-ABBOTT-11P-163-0840419-00

PATIENT
  Sex: Male
  Weight: 118.04 kg

DRUGS (4)
  1. LISINOPRIL [Concomitant]
     Indication: HYPERTENSION
  2. METFORMIN HCL [Concomitant]
     Indication: DIABETES MELLITUS
  3. NIASPAN [Suspect]
     Indication: BLOOD CHOLESTEROL INCREASED
     Dates: start: 20110601
  4. GLYBURIDE [Concomitant]
     Indication: DIABETES MELLITUS

REACTIONS (3)
  - FLUSHING [None]
  - PRURITUS [None]
  - PARAESTHESIA [None]
